FAERS Safety Report 17711788 (Version 1)
Quarter: 2020Q2

REPORT INFORMATION
  Report Type: Spontaneous
  Country: US (occurrence: US)
  Receive Date: 20200424
  Receipt Date: 20200424
  Transmission Date: 20200714
  Serious: No
  Sender: FDA-Public Use
  Company Number: None

PATIENT
  Age: 58 Year
  Sex: Male

DRUGS (1)
  1. MYCOPHENOLATE  MOF TAB 250MG [Suspect]
     Active Substance: MYCOPHENOLATE MOFETIL
     Indication: GLOMERULAR VASCULAR DISORDER
     Route: 048
     Dates: start: 201903

REACTIONS (1)
  - Off label use [None]

NARRATIVE: CASE EVENT DATE: 20200424
